FAERS Safety Report 18908834 (Version 2)
Quarter: 2021Q1

REPORT INFORMATION
  Report Type: Report from Study
  Country: US (occurrence: US)
  Receive Date: 20210218
  Receipt Date: 20210323
  Transmission Date: 20210420
  Serious: Yes (Other)
  Sender: FDA-Public Use
  Company Number: US-EMD SERONO-9218863

PATIENT
  Sex: Female

DRUGS (2)
  1. PLAVIX [Suspect]
     Active Substance: CLOPIDOGREL BISULFATE
     Indication: MYOCARDIAL INFARCTION
  2. REBIF [Suspect]
     Active Substance: INTERFERON BETA-1A
     Indication: PRODUCT USED FOR UNKNOWN INDICATION
     Route: 058
     Dates: start: 20030124

REACTIONS (8)
  - Migraine [Not Recovered/Not Resolved]
  - Increased tendency to bruise [Unknown]
  - Pruritus [Unknown]
  - Myocardial infarction [Unknown]
  - Memory impairment [Unknown]
  - Influenza like illness [Not Recovered/Not Resolved]
  - Injection site bruising [Unknown]
  - Acne [Unknown]
